FAERS Safety Report 19728211 (Version 1)
Quarter: 2021Q3

REPORT INFORMATION
  Report Type: Spontaneous
  Country: DE (occurrence: DE)
  Receive Date: 20210820
  Receipt Date: 20210820
  Transmission Date: 20211014
  Serious: Yes (Hospitalization, Other)
  Sender: FDA-Public Use
  Company Number: DE-TEVA-2021-DE-1942582

PATIENT
  Age: 86 Year
  Sex: Female
  Weight: 86 kg

DRUGS (12)
  1. PREGABALIN. [Concomitant]
     Active Substance: PREGABALIN
     Dosage: 75 MG, 2?1?0?0
  2. METAMIZOL [Concomitant]
     Active Substance: METAMIZOLE SODIUM
     Dosage: 2000 MILLIGRAM DAILY; 1?1?1?1
  3. FEBUXOSTAT. [Concomitant]
     Active Substance: FEBUXOSTAT
     Dosage: 80 MILLIGRAM DAILY; 80 MG, 1?0?0?0
  4. BISOPROLOL [Concomitant]
     Active Substance: BISOPROLOL
     Dosage: 2.5 MILLIGRAM DAILY; 1?0?0?0
  5. APIXABAN [Concomitant]
     Active Substance: APIXABAN
     Dosage: 5 MILLIGRAM DAILY; 1?0?1?0
  6. MACROGOL/KALIUMCHLORID/NATRIUMCARBONAT/NATRIUMCHLORID [Concomitant]
     Dosage: 1 DOSAGE FORMS DAILY; 1?0?0?0
  7. CITALOPRAM [Concomitant]
     Active Substance: CITALOPRAM HYDROBROMIDE
     Dosage: 10 MILLIGRAM DAILY; 1?0?0?0
  8. MIRTAZAPIN [Concomitant]
     Active Substance: MIRTAZAPINE
     Dosage: .5 DOSAGE FORMS DAILY; 30 MG, 0?0?0.5?0
  9. PRAVASTATIN. [Concomitant]
     Active Substance: PRAVASTATIN
     Dosage: .5 DOSAGE FORMS DAILY; 20 MG, 0?0?0.5?0
  10. HYDROMORPHON [Concomitant]
     Active Substance: HYDROMORPHONE
     Dosage: 8 MG, 2?0?1.5?0
  11. RAMIPRIL. [Suspect]
     Active Substance: RAMIPRIL
     Dosage: 5 MILLIGRAM DAILY; 1?0?0?0
     Route: 065
  12. TOREMIFEN [Suspect]
     Active Substance: TOREMIFENE
     Dosage: 1 DOSAGE FORMS DAILY; 0.5 MG, 0.5?0?0.5?0
     Route: 065

REACTIONS (9)
  - General physical health deterioration [Unknown]
  - Dyspnoea [Unknown]
  - Fatigue [Unknown]
  - Pain [Unknown]
  - Peripheral swelling [Unknown]
  - Atrial fibrillation [Unknown]
  - Oedema peripheral [Unknown]
  - Pyrexia [Unknown]
  - Erythema [Unknown]
